FAERS Safety Report 26052165 (Version 1)
Quarter: 2025Q4

REPORT INFORMATION
  Report Type: Spontaneous
  Country: US (occurrence: US)
  Receive Date: 20251117
  Receipt Date: 20251117
  Transmission Date: 20260119
  Serious: Yes (Other)
  Sender: COOPERSURGICAL
  Company Number: US-COOPERSURGICAL, INC.-2025CPS007926

PATIENT
  Age: 26 Year
  Sex: Female
  Weight: 122.45 kg

DRUGS (1)
  1. PARAGARD T 380A [Suspect]
     Active Substance: COPPER
     Dosage: UNK
     Route: 015
     Dates: start: 20151006, end: 20171227

REACTIONS (20)
  - Surgery [Recovered/Resolved]
  - Reproductive complication associated with device [Not Recovered/Not Resolved]
  - Uterine cancer [Unknown]
  - Uterine disorder [Unknown]
  - Emotional distress [Unknown]
  - Dysuria [Unknown]
  - Pollakiuria [Unknown]
  - Micturition urgency [Unknown]
  - Haematuria [Unknown]
  - Vaginal odour [Unknown]
  - Sexual dysfunction [Unknown]
  - Menstrual disorder [Unknown]
  - Abnormal uterine bleeding [Not Recovered/Not Resolved]
  - Menstruation irregular [Unknown]
  - Intermenstrual bleeding [Unknown]
  - Vaginal discharge [Unknown]
  - Pain [Not Recovered/Not Resolved]
  - Muscle spasms [Not Recovered/Not Resolved]
  - Pelvic pain [Unknown]
  - Device dislocation [Recovered/Resolved]

NARRATIVE: CASE EVENT DATE: 20151222
